FAERS Safety Report 9589636 (Version 1)
Quarter: 2013Q4

REPORT INFORMATION
  Report Type: Spontaneous
  Country: US (occurrence: US)
  Receive Date: 20131003
  Receipt Date: 20131003
  Transmission Date: 20140711
  Serious: No
  Sender: FDA-Public Use
  Company Number: US-AMGEN-USASP2012071116

PATIENT
  Age: 53 Year
  Sex: Male

DRUGS (11)
  1. ENBREL [Suspect]
     Indication: RHEUMATOID ARTHRITIS
     Dosage: UNK UNK, QWK
     Dates: start: 201209, end: 201209
  2. CALCIUM [Concomitant]
     Dosage: UNK
  3. CITALOPRAM [Concomitant]
     Dosage: UNK
  4. DILTIAZEM [Concomitant]
  5. FOLIC ACID [Concomitant]
     Dosage: UNK
  6. LIVALO [Concomitant]
     Dosage: UNK
  7. LOSARTAN POTASSIUM [Concomitant]
     Dosage: UNK
  8. PRILOSEC                           /00661201/ [Concomitant]
     Dosage: UNK
  9. VITAMIN D3 [Concomitant]
     Dosage: UNK
  10. VITAMIN B [Concomitant]
     Dosage: UNK
  11. LABETALOL [Concomitant]
     Dosage: UNK

REACTIONS (2)
  - Nausea [Unknown]
  - Malaise [Unknown]
